FAERS Safety Report 9413540 (Version 1)
Quarter: 2013Q2

REPORT INFORMATION
  Report Type: Spontaneous
  Country: GB (occurrence: None)
  Receive Date: 20130610
  Receipt Date: 20130610
  Transmission Date: 20140414
  Serious: Yes (Other)
  Sender: FDA-Public Use
  Company Number: HRA-CDB20120285

PATIENT
  Sex: Female

DRUGS (1)
  1. ELLAONE [Suspect]
     Indication: PRODUCT USED FOR UNKNOWN INDICATION
     Dates: start: 20120913

REACTIONS (3)
  - Drug ineffective [None]
  - Abortion induced [None]
  - Pregnancy after post coital contraception [None]
